FAERS Safety Report 12720585 (Version 1)
Quarter: 2016Q3

REPORT INFORMATION
  Report Type: Report from Study
  Country: ES (occurrence: ES)
  Receive Date: 20160907
  Receipt Date: 20160907
  Transmission Date: 20161109
  Serious: Yes (Hospitalization)
  Sender: FDA-Public Use
  Company Number: ES-PFIZER INC-2016418017

PATIENT
  Age: 78 Year
  Sex: Male

DRUGS (7)
  1. SIMVASTATIN. [Interacting]
     Active Substance: SIMVASTATIN
     Indication: HYPERLIPIDAEMIA
     Dosage: 20 MG, DAILY
     Route: 048
  2. TIOTROPIUM [Concomitant]
     Active Substance: TIOTROPIUM
     Dosage: UNK
  3. INDACATEROL [Concomitant]
     Active Substance: INDACATEROL
     Dosage: UNK
  4. TRANGOREX [Suspect]
     Active Substance: AMIODARONE HYDROCHLORIDE
     Indication: ATRIAL FIBRILLATION
     Dosage: 200 MG, 5 TIMES PER WEEK
     Route: 048
     Dates: start: 201412
  5. PARACETAMOL [Interacting]
     Active Substance: ACETAMINOPHEN
     Dosage: UNK, DAILY
     Route: 048
  6. ALDOCUMAR [Interacting]
     Active Substance: WARFARIN SODIUM
     Indication: CARDIAC VALVE PROSTHESIS USER
     Dosage: UNK, DAILY
     Route: 048
     Dates: end: 20150529
  7. OMAPREN [Interacting]
     Active Substance: OMEPRAZOLE
     Indication: PROPHYLAXIS
     Dosage: 20 MG, DAILY
     Route: 048

REACTIONS (2)
  - Drug interaction [Unknown]
  - Haematochezia [Recovered/Resolved]

NARRATIVE: CASE EVENT DATE: 20150529
